FAERS Safety Report 6260957-3 (Version None)
Quarter: 2009Q3

REPORT INFORMATION
  Report Type: 
  Country: None (occurrence: None)
  Receive Date: 20090709
  Receipt Date: 20090706
  Transmission Date: 20100115
  Serious: Yes (Hospitalization)
  Sender: FDA-Public Use
  Company Number: LU-BRISTOL-MYERS SQUIBB COMPANY-14688675

PATIENT
  Age: 5 Decade
  Sex: Female

DRUGS (2)
  1. ORENCIA [Suspect]
     Indication: POLYARTHRITIS
     Dosage: TREATED(ALMOST 1 YEAR),INTERRUPTED DURING APPROX.3 MONTHS. (25JUN09) THE INFUSION STARTED AGAIN
  2. SOLU-MEDROL [Concomitant]
     Indication: POLYARTHRITIS

REACTIONS (3)
  - CEREBROVASCULAR ACCIDENT [None]
  - CHEST PAIN [None]
  - INFARCTION [None]
